FAERS Safety Report 16652844 (Version 2)
Quarter: 2020Q1

REPORT INFORMATION
  Report Type: Spontaneous
  Country: US (occurrence: US)
  Receive Date: 20190731
  Receipt Date: 20200114
  Transmission Date: 20200409
  Serious: No
  Sender: FDA-Public Use
  Company Number: US-MYLANLABS-2019M1066603

PATIENT
  Sex: Male
  Weight: 82 kg

DRUGS (3)
  1. FLOMAX [Concomitant]
     Active Substance: TAMSULOSIN HYDROCHLORIDE
     Dosage: 0.5 MILLIGRAM, QD
  2. MUSE [Suspect]
     Active Substance: ALPROSTADIL
     Indication: ERECTILE DYSFUNCTION
     Dosage: 500 MICROGRAM
     Route: 066
  3. AVODART [Concomitant]
     Active Substance: DUTASTERIDE
     Dosage: 0.5 MILLIGRAM, QD

REACTIONS (3)
  - Wrong technique in product usage process [Unknown]
  - Drug ineffective [Recovered/Resolved]
  - Administration site haemorrhage [Recovered/Resolved]
